FAERS Safety Report 8561662 (Version 3)
Quarter: 2012Q4

REPORT INFORMATION
  Report Type: 
  Country: US (occurrence: US)
  Receive Date: 20120515
  Receipt Date: 20121003
  Transmission Date: 20130627
  Serious: Yes (Hospitalization)
  Sender: FDA-Public Use
  Company Number: US-BIOGENIDEC-2012BI016157

PATIENT
  Age: 60 Year
  Sex: Female

DRUGS (9)
  1. AVONEX [Suspect]
     Indication: MULTIPLE SCLEROSIS
     Route: 030
     Dates: start: 200906
  2. BACLOFEN [Concomitant]
     Indication: MUSCLE SPASTICITY
  3. ZANAFLEX [Concomitant]
     Indication: MUSCLE SPASTICITY
  4. DANTROLENE [Concomitant]
     Indication: MUSCLE SPASTICITY
  5. DETROL LA [Concomitant]
  6. LOSARTAN/HYDROCHLOROTHIAZIDE [Concomitant]
  7. NITROFURANTOIN [Concomitant]
  8. SIMVASTATIN [Concomitant]
  9. SYNTHROID [Concomitant]

REACTIONS (5)
  - Hepatic enzyme increased [Unknown]
  - Urinary tract infection [Recovered/Resolved]
  - Hypertensive encephalopathy [Recovered/Resolved]
  - Subarachnoid haemorrhage [Recovered/Resolved]
  - Convulsion [Recovered/Resolved]
